FAERS Safety Report 26212602 (Version 1)
Quarter: 2025Q4

REPORT INFORMATION
  Report Type: Spontaneous
  Country: US (occurrence: US)
  Receive Date: 20251230
  Receipt Date: 20251230
  Transmission Date: 20260119
  Serious: Yes (Other)
  Sender: BAYER HEALTHCARE LLC
  Company Number: US-BAYER-2025A170183

PATIENT

DRUGS (2)
  1. AFRIN ORIGINAL NASAL [Suspect]
     Active Substance: OXYMETAZOLINE HYDROCHLORIDE
     Indication: Hypersensitivity
  2. AFRIN ORIGINAL NASAL [Suspect]
     Active Substance: OXYMETAZOLINE HYDROCHLORIDE
     Indication: Nasopharyngitis

REACTIONS (3)
  - Drug dependence [Recovered/Resolved]
  - Rebound nasal congestion [Recovered/Resolved]
  - Product use issue [Recovered/Resolved]
